FAERS Safety Report 8450536-1 (Version None)
Quarter: 2012Q2

REPORT INFORMATION
  Report Type: 
  Country: None (occurrence: None)
  Receive Date: 20120605
  Receipt Date: 20120521
  Transmission Date: 20120825
  Serious: Yes (Death)
  Sender: FDA-Public Use
  Company Number: AEESP201200269

PATIENT
  Age: 77 Year
  Sex: Female

DRUGS (8)
  1. VALSARTAN/HYDROCHLOORTHIAZIDE (CO-DIOVAN) [Concomitant]
  2. AMLODIPINE [Concomitant]
  3. DESLORATADINE [Concomitant]
  4. TIOTROPIUM (TIOTROPIUM) [Concomitant]
  5. ASPIRIN [Concomitant]
  6. ALLOPURINOL [Concomitant]
  7. FLEBOGAMMA [Suspect]
     Indication: HYPOGAMMAGLOBULINAEMIA
     Dosage: 20 GM;1X
     Route: 042
     Dates: start: 20120508, end: 20120508
  8. PANTOPRAZOL (PANTOPRAZOLE SODIUM SESQUIHYDRATE) [Concomitant]

REACTIONS (1)
  - DEATH [None]
